FAERS Safety Report 16937766 (Version 1)
Quarter: 2019Q4

REPORT INFORMATION
  Report Type: Spontaneous
  Country: NL (occurrence: PT)
  Receive Date: 20191018
  Receipt Date: 20191018
  Transmission Date: 20200122
  Serious: Yes (Life-Threatening, Hospitalization, Other)
  Sender: FDA-Public Use
  Company Number: PT-FRESENIUS KABI-FK201911223

PATIENT
  Age: 17 Year
  Sex: Female

DRUGS (11)
  1. ATROPINE (MANUFACTURER UNKNOWN) [Suspect]
     Active Substance: ATROPINE
     Indication: CARDIO-RESPIRATORY ARREST
     Route: 065
  2. DOPAMINE (MANUFACTURER UNKNOWN) [Suspect]
     Active Substance: DOPAMINE HYDROCHLORIDE
     Indication: HAEMODYNAMIC INSTABILITY
     Dosage: UNK
     Route: 065
  3. SODIUM BICARBONATE (MANUFACTURER UNKNOWN) [Suspect]
     Active Substance: SODIUM BICARBONATE
     Indication: METABOLIC ACIDOSIS
     Dosage: UNK
     Route: 065
  4. IBUPROFEN. [Suspect]
     Active Substance: IBUPROFEN
     Indication: TOXICITY TO VARIOUS AGENTS
     Dosage: UNK
     Route: 065
  5. SODIUM BICARBONATE (MANUFACTURER UNKNOWN) [Suspect]
     Active Substance: SODIUM BICARBONATE
     Indication: CARDIO-RESPIRATORY ARREST
     Dosage: 1 MEQ/KG/H
     Route: 065
  6. EPINEPHRINE. [Suspect]
     Active Substance: EPINEPHRINE
     Indication: CARDIAC ARREST
     Dosage: 0.15-0.3 PG/KG/MIN
     Route: 065
  7. DOPAMINE (MANUFACTURER UNKNOWN) [Suspect]
     Active Substance: DOPAMINE HYDROCHLORIDE
     Indication: CARDIAC ARREST
     Dosage: 10 PG/KG/MIN
     Route: 065
  8. IBUPROFEN. [Suspect]
     Active Substance: IBUPROFEN
     Indication: POISONING DELIBERATE
     Dosage: 1.5 G, UNK
     Route: 065
  9. EPINEPHRINE. [Suspect]
     Active Substance: EPINEPHRINE
     Indication: CARDIO-RESPIRATORY ARREST
     Dosage: 0.6 G/KG, Z (PER MIN)
     Route: 065
  10. PROPAFENONE. [Suspect]
     Active Substance: PROPAFENONE
     Indication: TOXICITY TO VARIOUS AGENTS
     Dosage: UNK
     Route: 065
  11. PROPAFENONE. [Suspect]
     Active Substance: PROPAFENONE
     Indication: POISONING DELIBERATE
     Dosage: 6 G
     Route: 065

REACTIONS (26)
  - Cardiogenic shock [Recovered/Resolved]
  - pH body fluid abnormal [Recovered/Resolved]
  - Renal injury [Recovered/Resolved]
  - Cardio-respiratory arrest [Recovered/Resolved]
  - Myocardial ischaemia [Recovered/Resolved]
  - Troponin I increased [Recovered/Resolved]
  - Partial seizures [Recovered/Resolved]
  - Alanine aminotransferase increased [Recovered/Resolved]
  - Enzyme induction [Unknown]
  - Sinus bradycardia [Recovered/Resolved]
  - N-terminal prohormone brain natriuretic peptide [Recovered/Resolved]
  - Cardiac arrest [Recovered/Resolved]
  - Myocardial necrosis marker increased [Recovered/Resolved]
  - Diastolic dysfunction [Recovered/Resolved]
  - Poor peripheral circulation [Recovered/Resolved]
  - Bradycardia [Recovered/Resolved]
  - Seizure [Recovered/Resolved]
  - Generalised tonic-clonic seizure [Recovered/Resolved]
  - Cardiac assistance device user [Recovered/Resolved]
  - Metabolic acidosis [Recovered/Resolved]
  - Ischaemic hepatitis [Recovered/Resolved]
  - Systolic dysfunction [Recovered/Resolved]
  - Acute kidney injury [Recovered/Resolved]
  - Coma scale abnormal [Recovered/Resolved]
  - Therapy non-responder [Unknown]
  - Haemodynamic instability [Recovered/Resolved]
